FAERS Safety Report 6591003-X (Version None)
Quarter: 2010Q1

REPORT INFORMATION
  Report Type: 
  Country: None (occurrence: None)
  Receive Date: 20100219
  Receipt Date: 20100210
  Transmission Date: 20100710
  Serious: Yes (Hospitalization)
  Sender: FDA-Public Use
  Company Number: US-ELI_LILLY_AND_COMPANY-US201002002946

PATIENT
  Sex: Female

DRUGS (5)
  1. HUMALOG [Suspect]
     Indication: DIABETES MELLITUS
     Dosage: 18 U, OTHER
     Dates: start: 20090901
  2. LISINOPRIL [Concomitant]
     Dosage: UNK, DAILY (1/D)
  3. GEMFIBROZIL [Concomitant]
     Dosage: UNK, 2/D
  4. METOPROLOL TARTRATE [Concomitant]
     Dosage: UNK, 2/D
  5. PANCREASE MT [Concomitant]

REACTIONS (4)
  - BLOOD GLUCOSE FLUCTUATION [None]
  - BODY TEMPERATURE INCREASED [None]
  - MENINGITIS [None]
  - POOR QUALITY DRUG ADMINISTERED [None]
